FAERS Safety Report 16627280 (Version 3)
Quarter: 2019Q3

REPORT INFORMATION
  Report Type: Spontaneous
  Country: MM (occurrence: MM)
  Receive Date: 20190724
  Receipt Date: 20190808
  Transmission Date: 20191004
  Serious: Yes (Death, Hospitalization, Disabling, Other)
  Sender: FDA-Public Use
  Company Number: MM-JNJFOC-20190717432

PATIENT
  Age: 37 Year
  Sex: Male
  Weight: 42 kg

DRUGS (22)
  1. DOLUTEGRAVIR [Concomitant]
     Active Substance: DOLUTEGRAVIR
     Indication: ANTIVIRAL TREATMENT
     Route: 048
     Dates: start: 20190305
  2. MANNITOL. [Concomitant]
     Active Substance: MANNITOL
     Indication: INTRACRANIAL PRESSURE INCREASED
     Route: 042
     Dates: start: 20190715, end: 20190717
  3. CEFOTAXIME [Concomitant]
     Active Substance: CEFOTAXIME SODIUM
     Indication: MENINGITIS TUBERCULOUS
     Dosage: 7 DAYS
     Route: 042
  4. PYRAZINAMIDE. [Suspect]
     Active Substance: PYRAZINAMIDE
     Indication: TUBERCULOSIS
     Route: 048
     Dates: start: 20190125, end: 20190522
  5. DIAZEPAM. [Concomitant]
     Active Substance: DIAZEPAM
     Indication: PRODUCT USED FOR UNKNOWN INDICATION
     Dosage: 1 AMPULE START.
     Route: 030
  6. CLOFAZIMINE [Suspect]
     Active Substance: CLOFAZIMINE
     Indication: TUBERCULOSIS
     Route: 048
     Dates: start: 20190125
  7. CYCLOSERINE. [Suspect]
     Active Substance: CYCLOSERINE
     Indication: TUBERCULOSIS
     Route: 048
     Dates: start: 20190125
  8. RANITIDINE. [Concomitant]
     Active Substance: RANITIDINE
     Indication: MELAENA
     Dosage: 1 AMP STAT FOLLOWED BY 12 HOURLY FOR 3 DAYS.
     Route: 042
     Dates: start: 20190708
  9. LAMIVUDINE. [Concomitant]
     Active Substance: LAMIVUDINE
     Indication: ANTIVIRAL TREATMENT
     Route: 048
     Dates: start: 20190214
  10. LEVOFLOXACIN. [Suspect]
     Active Substance: LEVOFLOXACIN
     Indication: TUBERCULOSIS
     Route: 048
     Dates: start: 20190125
  11. TENOFOVIR [Concomitant]
     Active Substance: TENOFOVIR
     Indication: ANTIVIRAL TREATMENT
     Route: 048
     Dates: start: 20190214
  12. CEFOPERAZONE [Concomitant]
     Active Substance: CEFOPERAZONE
     Indication: MENINGITIS BACTERIAL
     Route: 042
     Dates: start: 20190707, end: 20190713
  13. COTRIMOXAZOLE [Concomitant]
     Active Substance: SULFAMETHOXAZOLE\TRIMETHOPRIM
     Indication: PROPHYLAXIS
     Route: 065
     Dates: start: 20190710
  14. DEXA                               /00008501/ [Concomitant]
     Active Substance: BETAMETHASONE
     Indication: MENINGITIS TUBERCULOUS
     Route: 048
  15. ETHIONAMIDE [Suspect]
     Active Substance: ETHIONAMIDE
     Route: 048
     Dates: start: 20190531
  16. PYRAZINAMIDE. [Suspect]
     Active Substance: PYRAZINAMIDE
     Route: 048
     Dates: start: 20190604
  17. BEDAQUILINE [Suspect]
     Active Substance: BEDAQUILINE
     Indication: TUBERCULOSIS
     Route: 048
     Dates: start: 20190125
  18. DEXAMETHASONE. [Concomitant]
     Active Substance: DEXAMETHASONE
     Indication: MENINGITIS TUBERCULOUS
     Route: 042
     Dates: start: 20190707
  19. LACTULOSE. [Concomitant]
     Active Substance: LACTULOSE
     Indication: PRODUCT USED FOR UNKNOWN INDICATION
     Dosage: 20 CC
     Route: 065
     Dates: start: 20190718
  20. SULBACTAM [Concomitant]
     Active Substance: SULBACTAM
     Indication: MENINGITIS BACTERIAL
     Route: 042
     Dates: start: 20190707, end: 20190713
  21. ETHIONAMIDE [Suspect]
     Active Substance: ETHIONAMIDE
     Indication: TUBERCULOSIS
     Route: 048
     Dates: start: 20190125, end: 20190522
  22. COTRIMOXAZOLE [Concomitant]
     Active Substance: SULFAMETHOXAZOLE\TRIMETHOPRIM
     Indication: PROPHYLAXIS
     Route: 048
     Dates: start: 20190710

REACTIONS (4)
  - Meningitis cryptococcal [Fatal]
  - Hepatitis acute [Unknown]
  - Hyponatraemia [Recovered/Resolved]
  - Electrocardiogram QT prolonged [Unknown]

NARRATIVE: CASE EVENT DATE: 20190523
